FAERS Safety Report 4309809-6 (Version None)
Quarter: 2004Q1

REPORT INFORMATION
  Report Type: 
  Country: None (occurrence: None)
  Receive Date: 20040301
  Receipt Date: 20031124
  Transmission Date: 20041129
  Serious: Yes (Hospitalization)
  Sender: FDA-Public Use
  Company Number: US-SHR-03-003742

PATIENT
  Age: 38 Year
  Sex: Female
  Weight: 58.514 kg

DRUGS (2)
  1. YASMIN [Suspect]
     Indication: ENDOMETRIOSIS
     Dosage: 1 TABLET 1XDAY ORAL
     Route: 048
     Dates: start: 20040919, end: 20030201
  2. SINGULAIR ^MSD^ (MONTELEUKAST SODIUM) [Concomitant]

REACTIONS (1)
  - PULMONARY EMBOLISM [None]
